FAERS Safety Report 6859404-X (Version None)
Quarter: 2010Q3

REPORT INFORMATION
  Report Type: 
  Country: None (occurrence: None)
  Receive Date: 20100719
  Receipt Date: 20080225
  Transmission Date: 20110219
  Serious: No
  Sender: FDA-Public Use
  Company Number: US-PFIZER INC-2008019790

PATIENT
  Sex: Male
  Weight: 90.7 kg

DRUGS (1)
  1. CHANTIX [Suspect]
     Indication: SMOKING CESSATION THERAPY

REACTIONS (6)
  - ANGER [None]
  - CONSTIPATION [None]
  - INCREASED APPETITE [None]
  - INTENTIONAL DRUG MISUSE [None]
  - MOOD SWINGS [None]
  - WEIGHT INCREASED [None]
